FAERS Safety Report 23437254 (Version 3)
Quarter: 2024Q2

REPORT INFORMATION
  Report Type: Report from Study
  Country: IN (occurrence: IN)
  Receive Date: 20240124
  Receipt Date: 20240619
  Transmission Date: 20240716
  Serious: Yes (Other)
  Sender: FDA-Public Use
  Company Number: IN-002147023-NVSC2022IN050017

PATIENT
  Age: 65 Year
  Sex: Female

DRUGS (8)
  1. TASIGNA [Suspect]
     Active Substance: NILOTINIB
     Indication: Chronic myeloid leukaemia
     Dosage: 300 MG, BID
     Route: 048
     Dates: start: 20191209
  2. TASIGNA [Suspect]
     Active Substance: NILOTINIB
     Dosage: 300 MG, BID
     Route: 065
     Dates: start: 20220105
  3. TASIGNA [Suspect]
     Active Substance: NILOTINIB
     Dosage: 300 MG, BID
     Route: 065
     Dates: start: 20220413
  4. TASIGNA [Suspect]
     Active Substance: NILOTINIB
     Dosage: 300 MG, BID
     Route: 065
     Dates: start: 20221004
  5. TASIGNA [Suspect]
     Active Substance: NILOTINIB
     Dosage: 300 MG, BID
     Route: 065
     Dates: start: 20221226
  6. TASIGNA [Suspect]
     Active Substance: NILOTINIB
     Dosage: 300 MG, BID
     Route: 048
     Dates: start: 20230627
  7. TASIGNA [Suspect]
     Active Substance: NILOTINIB
     Dosage: 200 MG (2-0-0/2-0-2 ALTERNATE DAY
     Route: 048
  8. TASIGNA [Suspect]
     Active Substance: NILOTINIB
     Dosage: 150 MG, 2-0-2/2-0-0 ALTERNATE DAY
     Route: 048

REACTIONS (8)
  - Myocardial ischaemia [Unknown]
  - Hypothyroidism [Unknown]
  - Cough [Unknown]
  - Hypertension [Unknown]
  - Hypertension [Recovered/Resolved]
  - Hyperlipidaemia [Recovered/Resolved]
  - Rhinorrhoea [Unknown]
  - Inappropriate schedule of product administration [Unknown]

NARRATIVE: CASE EVENT DATE: 20220101
